FAERS Safety Report 6160104-2 (Version None)
Quarter: 2009Q2

REPORT INFORMATION
  Report Type: 
  Country: None (occurrence: None)
  Receive Date: 20090415
  Receipt Date: 20090330
  Transmission Date: 20091009
  Serious: Yes (Other)
  Sender: FDA-Public Use
  Company Number: 000618

PATIENT

DRUGS (1)
  1. VIMPAT [Suspect]

REACTIONS (2)
  - CONDITION AGGRAVATED [None]
  - CONVULSION [None]
